FAERS Safety Report 7801414-X (Version None)
Quarter: 2011Q4

REPORT INFORMATION
  Report Type: 
  Country: None (occurrence: None)
  Receive Date: 20111006
  Receipt Date: 20111006
  Transmission Date: 20120403
  Serious: Yes (Hospitalization)
  Sender: FDA-Public Use
  Company Number: None

PATIENT
  Age: 69 Year
  Sex: Male
  Weight: 84.4 kg

DRUGS (15)
  1. CARAFATE [Concomitant]
  2. VIT D3 [Concomitant]
  3. LORTAB [Concomitant]
  4. GARLIC [Concomitant]
  5. ATROVENT HFA [Concomitant]
  6. LIPITOR [Concomitant]
  7. PAXIL [Concomitant]
  8. PRILOSEC [Concomitant]
  9. VIT E [Concomitant]
  10. FERROUS SULFATE TAB [Concomitant]
  11. BISMUTH SUBSALICYLATE [Concomitant]
  12. IBUPROFEN [Suspect]
     Indication: PAIN
     Dosage: 800MG Q4HR PRN PO RECENT
     Route: 048
  13. M.V.I. [Concomitant]
  14. PROVENTIL [Concomitant]
  15. LIDOCAINE HCL VISCOUS [Concomitant]

REACTIONS (9)
  - RENAL FAILURE ACUTE [None]
  - ORAL PAIN [None]
  - PNEUMONIA [None]
  - UNEVALUABLE EVENT [None]
  - HYPOPHAGIA [None]
  - HYPERCALCAEMIA [None]
  - HAEMATEMESIS [None]
  - SYSTEMIC INFLAMMATORY RESPONSE SYNDROME [None]
  - INCISION SITE HAEMORRHAGE [None]
